FAERS Safety Report 5807129-1 (Version None)
Quarter: 2008Q3

REPORT INFORMATION
  Report Type: 
  Country: None (occurrence: None)
  Receive Date: 20080711
  Receipt Date: 20080701
  Transmission Date: 20090109
  Serious: Yes (Other)
  Sender: FDA-Public Use
  Company Number: US-WATSON-2008-03960

PATIENT
  Age: 38 Year
  Sex: Female

DRUGS (10)
  1. FENTANYL CITRATE (WATSON LABORATORIES) [Suspect]
     Indication: ANAESTHESIA
     Dosage: 150 UG, UNK
     Route: 065
  2. ISOFLURANE (WATSON LABORATORIES) [Suspect]
     Indication: ANAESTHESIA
     Dosage: UNK IN 33% OXYGEN
  3. NITROUS OXIDE [Suspect]
     Indication: ANAESTHESIA
     Dosage: 66 %, UNKNOWN
  4. PROPOFOL [Suspect]
     Indication: ANAESTHESIA
     Dosage: 200 MG, UNK
     Route: 065
  5. SUCCINYLCHOLINE CHLORIDE [Suspect]
     Indication: ANAESTHESIA
     Dosage: 100 MG, UNK
     Route: 065
  6. MIDAZOLAM HCL [Concomitant]
     Indication: ANAESTHESIA
     Dosage: UNK
     Route: 065
  7. BICITRA                            /00586801/ [Concomitant]
     Indication: ANAESTHESIA
     Dosage: UNK
     Route: 065
  8. RANITIDINE HCL [Concomitant]
     Indication: PREMEDICATION
     Dosage: UNK
  9. CEFAZOLIN [Concomitant]
     Indication: PREMEDICATION
     Dosage: UNK
  10. DOLASETRON [Concomitant]
     Indication: PREMEDICATION
     Dosage: UNK

REACTIONS (1)
  - DEAFNESS NEUROSENSORY [None]
